FAERS Safety Report 21019461 (Version 1)
Quarter: 2022Q2

REPORT INFORMATION
  Report Type: Spontaneous
  Country: US (occurrence: US)
  Receive Date: 20220628
  Receipt Date: 20220628
  Transmission Date: 20220721
  Serious: No
  Sender: FDA-Public Use
  Company Number: US-JAZZ-2022-US-010004

PATIENT
  Sex: Female

DRUGS (1)
  1. XYREM [Suspect]
     Active Substance: SODIUM OXYBATE
     Indication: Product used for unknown indication
     Dosage: UNK
     Route: 048

REACTIONS (14)
  - Nervous system disorder [Unknown]
  - Oropharyngeal discomfort [Unknown]
  - Dry throat [Unknown]
  - Adverse event [Unknown]
  - Stress [Unknown]
  - Attention deficit hyperactivity disorder [Unknown]
  - Blood cortisol [Unknown]
  - Sinus congestion [Unknown]
  - Feeling abnormal [Unknown]
  - Weight decreased [Unknown]
  - Enuresis [Unknown]
  - Anxiety [Unknown]
  - Decreased appetite [Unknown]
  - Dry mouth [Unknown]
